FAERS Safety Report 11875756 (Version 3)
Quarter: 2016Q1

REPORT INFORMATION
  Report Type: Spontaneous
  Country: FR (occurrence: FR)
  Receive Date: 20151229
  Receipt Date: 20160104
  Transmission Date: 20160526
  Serious: Yes (Other)
  Sender: FDA-Public Use
  Company Number: FR-TEVA-621480ISR

PATIENT
  Sex: Male

DRUGS (1)
  1. ZINC-ACETATE [Suspect]
     Active Substance: ZINC ACETATE
     Indication: HEPATO-LENTICULAR DEGENERATION
     Route: 065

REACTIONS (2)
  - Peritonitis [Unknown]
  - Gastric ulcer perforation [Unknown]
